FAERS Safety Report 8888313 (Version 3)
Quarter: 2013Q1

REPORT INFORMATION
  Report Type: Spontaneous
  Country: FR (occurrence: FR)
  Receive Date: 20121106
  Receipt Date: 20130211
  Transmission Date: 20140127
  Serious: Yes (Hospitalization)
  Sender: FDA-Public Use
  Company Number: FR-PFIZER INC-2012272331

PATIENT
  Age: 39 Year
  Sex: Female

DRUGS (14)
  1. NEURONTIN [Suspect]
     Dosage: 400 MG, UNK
     Route: 048
     Dates: end: 20120913
  2. NEURONTIN [Suspect]
     Dosage: 600 MG, 1X/DAY
     Route: 048
     Dates: start: 20120914, end: 20121004
  3. VANCOCIN [Suspect]
     Indication: ANTIBIOTIC THERAPY
     Dosage: UNK
     Route: 042
     Dates: start: 20120917, end: 20121001
  4. FORTUM [Suspect]
     Indication: ANTIBIOTIC THERAPY
     Dosage: 2 G, 3X/DAY
     Route: 042
     Dates: start: 20120920, end: 20120929
  5. CIFLOX [Suspect]
     Indication: ANTIBIOTIC THERAPY
     Dosage: 750 MG, 2X/DAY
     Route: 048
     Dates: start: 20120920, end: 20120929
  6. ATARAX [Concomitant]
     Dosage: UNK
  7. XANAX [Concomitant]
     Dosage: UNK
  8. AZANTAC [Concomitant]
     Dosage: UNK
  9. PARACETAMOL WITH CODEINE [Concomitant]
     Dosage: UNK
  10. IXPRIM [Concomitant]
     Dosage: UNK
  11. LOVENOX [Concomitant]
     Dosage: UNK
  12. PYOSTACINE [Concomitant]
     Indication: ANTIBIOTIC THERAPY
     Dosage: 1 G, 3X/DAY
     Route: 048
     Dates: start: 20120915, end: 20120917
  13. GENTAMICIN [Concomitant]
     Indication: ANTIBIOTIC THERAPY
     Dosage: 500 MG, 1X/DAY
     Route: 042
     Dates: start: 20120917, end: 20120919
  14. FLAGYL [Concomitant]
     Indication: ANTIBIOTIC THERAPY
     Dosage: 500 MG, 3X/DAY
     Route: 048
     Dates: start: 20120917, end: 20120919

REACTIONS (2)
  - Toxic skin eruption [Recovered/Resolved]
  - Dermatitis bullous [Recovered/Resolved]
